FAERS Safety Report 8547280-9 (Version None)
Quarter: 2012Q3

REPORT INFORMATION
  Report Type: 
  Country: None (occurrence: None)
  Receive Date: 20120727
  Receipt Date: 20120327
  Transmission Date: 20120928
  Serious: No
  Sender: FDA-Public Use
  Company Number: US-ASTRAZENECA-2012SE20867

PATIENT
  Age: 34 Year
  Sex: Male

DRUGS (3)
  1. SEROQUEL [Suspect]
     Indication: SLEEP DISORDER
     Route: 048
  2. SEROQUEL [Suspect]
     Indication: AFFECTIVE DISORDER
     Route: 048
  3. SEROQUEL [Suspect]
     Indication: BIPOLAR DISORDER
     Route: 048

REACTIONS (5)
  - FEELING ABNORMAL [None]
  - MALAISE [None]
  - INTENTIONAL DRUG MISUSE [None]
  - WRONG DRUG ADMINISTERED [None]
  - RESTLESSNESS [None]
